FAERS Safety Report 19418594 (Version 1)
Quarter: 2021Q2

REPORT INFORMATION
  Report Type: Spontaneous
  Country: GB (occurrence: GB)
  Receive Date: 20210615
  Receipt Date: 20210615
  Transmission Date: 20210717
  Serious: Yes (Hospitalization, Other)
  Sender: FDA-Public Use
  Company Number: GB-ORGANON-O2106GBR000945

PATIENT
  Age: 25 Year
  Sex: Female
  Weight: 108.7 kg

DRUGS (1)
  1. NEXPLANON [Suspect]
     Active Substance: ETONOGESTREL
     Indication: CONTRACEPTIVE IMPLANT
     Dosage: 1 IMPLANT OF 68 MILLIGRAM
     Route: 059
     Dates: start: 20200302, end: 20210201

REACTIONS (5)
  - Haemorrhage [Unknown]
  - Abdominal pain [Unknown]
  - Maternal exposure during pregnancy [Unknown]
  - Pregnancy with implant contraceptive [Recovered/Resolved]
  - Abortion spontaneous [Unknown]

NARRATIVE: CASE EVENT DATE: 202101
